FAERS Safety Report 12853400 (Version 1)
Quarter: 2016Q4

REPORT INFORMATION
  Report Type: Spontaneous
  Country: JP (occurrence: JP)
  Receive Date: 20161017
  Receipt Date: 20161017
  Transmission Date: 20170207
  Serious: Yes (Life-Threatening)
  Sender: FDA-Public Use
  Company Number: JP-ACCORD-044873

PATIENT
  Age: 32 Year
  Sex: Male

DRUGS (4)
  1. CYCLOPHOSPHAMIDE/CYCLOPHOSPHAMIDE MONOHYDRATE [Suspect]
     Active Substance: CYCLOPHOSPHAMIDE
     Indication: DESMOPLASTIC SMALL ROUND CELL TUMOUR
     Dosage: 2 COURSES
  2. PIRARUBICIN [Suspect]
     Active Substance: PIRARUBICIN
     Indication: DESMOPLASTIC SMALL ROUND CELL TUMOUR
     Dosage: 2 COURSES
  3. ETOPOSIDE. [Suspect]
     Active Substance: ETOPOSIDE
     Indication: DESMOPLASTIC SMALL ROUND CELL TUMOUR
     Dosage: 2 COURSES
  4. CISPLATIN. [Suspect]
     Active Substance: CISPLATIN
     Indication: DESMOPLASTIC SMALL ROUND CELL TUMOUR
     Dosage: 2 COURSES

REACTIONS (1)
  - Drug ineffective [Unknown]
